FAERS Safety Report 6159667-2 (Version None)
Quarter: 2009Q2

REPORT INFORMATION
  Report Type: 
  Country: None (occurrence: None)
  Receive Date: 20090415
  Receipt Date: 20090414
  Transmission Date: 20091009
  Serious: No
  Sender: FDA-Public Use
  Company Number: 2009-194117-NL

PATIENT
  Sex: Female

DRUGS (1)
  1. ETONOGESTREL [Suspect]
     Dosage: DF

REACTIONS (5)
  - COMPLICATION OF DEVICE REMOVAL [None]
  - IMPLANT SITE NERVE INJURY [None]
  - MENORRHAGIA [None]
  - MENSTRUAL DISORDER [None]
  - NERVOUSNESS [None]
